FAERS Safety Report 21907886 (Version 1)
Quarter: 2023Q1

REPORT INFORMATION
  Report Type: Spontaneous
  Country: IT (occurrence: IT)
  Receive Date: 20230125
  Receipt Date: 20230125
  Transmission Date: 20230418
  Serious: Yes (Other)
  Sender: FDA-Public Use
  Company Number: IT-BoehringerIngelheim-2023-BI-211981

PATIENT
  Age: 65 Year
  Sex: Male

DRUGS (3)
  1. PRAMIPEXOLE [Suspect]
     Active Substance: PRAMIPEXOLE
     Indication: Parkinson^s disease
  2. PRAMIPEXOLE [Suspect]
     Active Substance: PRAMIPEXOLE
  3. CARBIDOPA\LEVODOPA [Suspect]
     Active Substance: CARBIDOPA\LEVODOPA
     Indication: Parkinson^s disease

REACTIONS (7)
  - Hallucination, visual [Recovered/Resolved]
  - Impulse-control disorder [Recovered/Resolved]
  - Euphoric mood [Unknown]
  - Compulsive shopping [Recovered/Resolved]
  - Dyschromatopsia [Recovered/Resolved]
  - Impulse-control disorder [Recovered/Resolved]
  - Obsessive thoughts [Recovered/Resolved]
